FAERS Safety Report 6068937-8 (Version None)
Quarter: 2009Q1

REPORT INFORMATION
  Report Type: 
  Country: None (occurrence: None)
  Receive Date: 20090206
  Receipt Date: 20090127
  Transmission Date: 20090719
  Serious: Yes (Hospitalization)
  Sender: FDA-Public Use
  Company Number: IT-AMGEN-UK330442

PATIENT
  Sex: Female

DRUGS (4)
  1. PANITUMUMAB [Suspect]
     Indication: COLORECTAL CANCER
     Route: 065
     Dates: end: 20090105
  2. OXALIPLATIN [Suspect]
     Indication: CHEMOTHERAPY
     Route: 065
     Dates: end: 20090112
  3. FLUOROURACIL [Suspect]
     Indication: CHEMOTHERAPY
     Route: 065
     Dates: end: 20090112
  4. RADIATION THERAPY [Suspect]
     Route: 065

REACTIONS (1)
  - CLOSTRIDIUM DIFFICILE COLITIS [None]
